FAERS Safety Report 15777959 (Version 4)
Quarter: 2019Q4

REPORT INFORMATION
  Report Type: Report from Study
  Country: BR (occurrence: BR)
  Receive Date: 20181231
  Receipt Date: 20191130
  Transmission Date: 20200122
  Serious: Yes (Other)
  Sender: FDA-Public Use
  Company Number: PHHY2018BR197639

PATIENT
  Sex: Female
  Weight: 69 kg

DRUGS (3)
  1. COSENTYX [Suspect]
     Active Substance: SECUKINUMAB
     Dosage: 150 CI/?G
     Route: 058
     Dates: start: 20161007
  2. COSENTYX [Suspect]
     Active Substance: SECUKINUMAB
     Indication: PSORIATIC ARTHROPATHY
     Dosage: 150 MG, UNK
     Route: 058
     Dates: start: 20161007
  3. COSENTYX [Suspect]
     Active Substance: SECUKINUMAB
     Dosage: UNK
     Route: 058
     Dates: start: 20180929

REACTIONS (16)
  - Dermatitis [Unknown]
  - Musculoskeletal stiffness [Unknown]
  - Inflammation [Unknown]
  - Pain in extremity [Unknown]
  - Limb discomfort [Unknown]
  - Oral pain [Not Recovered/Not Resolved]
  - Sjogren^s syndrome [Recovering/Resolving]
  - Spinal pain [Unknown]
  - Memory impairment [Not Recovered/Not Resolved]
  - Nail bed inflammation [Recovering/Resolving]
  - Arthralgia [Unknown]
  - Blister [Unknown]
  - Psoriatic arthropathy [Unknown]
  - Bone pain [Unknown]
  - Nervousness [Unknown]
  - Pain [Not Recovered/Not Resolved]

NARRATIVE: CASE EVENT DATE: 2017
